FAERS Safety Report 25567366 (Version 1)
Quarter: 2025Q3

REPORT INFORMATION
  Report Type: Spontaneous
  Country: US (occurrence: US)
  Receive Date: 20250716
  Receipt Date: 20250716
  Transmission Date: 20251021
  Serious: No
  Sender: MYLAN
  Company Number: US-MYLANLABS-2025M1057790

PATIENT
  Age: 30 Year
  Sex: Male

DRUGS (12)
  1. XANAX [Suspect]
     Active Substance: ALPRAZOLAM
     Indication: Product used for unknown indication
  2. XANAX [Suspect]
     Active Substance: ALPRAZOLAM
     Route: 065
  3. XANAX [Suspect]
     Active Substance: ALPRAZOLAM
     Route: 065
  4. XANAX [Suspect]
     Active Substance: ALPRAZOLAM
  5. OXYCODONE [Concomitant]
     Active Substance: OXYCODONE
  6. OXYCODONE [Concomitant]
     Active Substance: OXYCODONE
     Route: 065
  7. OXYCODONE [Concomitant]
     Active Substance: OXYCODONE
     Route: 065
  8. OXYCODONE [Concomitant]
     Active Substance: OXYCODONE
  9. COCAINE [Concomitant]
     Active Substance: COCAINE
  10. COCAINE [Concomitant]
     Active Substance: COCAINE
     Route: 065
  11. COCAINE [Concomitant]
     Active Substance: COCAINE
     Route: 065
  12. COCAINE [Concomitant]
     Active Substance: COCAINE

REACTIONS (3)
  - Dysstasia [Unknown]
  - Somnolence [Unknown]
  - Dysarthria [Unknown]
